FAERS Safety Report 7074485-9 (Version None)
Quarter: 2010Q4

REPORT INFORMATION
  Report Type: 
  Country: None (occurrence: None)
  Receive Date: 20101029
  Receipt Date: 20101027
  Transmission Date: 20110411
  Serious: Yes (Hospitalization)
  Sender: FDA-Public Use
  Company Number: JP-SP-2010-06221

PATIENT
  Age: 63 Year
  Sex: Male
  Weight: 67.8 kg

DRUGS (3)
  1. IMMUCYST [Suspect]
     Indication: BLADDER CANCER
     Route: 043
     Dates: start: 20100817, end: 20100824
  2. CEFCAPENE PIVOXIL HYDROCHLORIDE [Concomitant]
  3. LOXOPROFEN SODIUM [Concomitant]

REACTIONS (1)
  - BOVINE TUBERCULOSIS [None]
